FAERS Safety Report 6917378-7 (Version None)
Quarter: 2010Q3

REPORT INFORMATION
  Report Type: 
  Country: None (occurrence: None)
  Receive Date: 20100810
  Receipt Date: 20100730
  Transmission Date: 20110219
  Serious: Yes (Other)
  Sender: FDA-Public Use
  Company Number: US-JNJFOC-20100800278

PATIENT
  Age: 17 Year
  Sex: Male
  Weight: 45.3 kg

DRUGS (1)
  1. REMICADE [Suspect]
     Indication: CROHN'S DISEASE
     Route: 042

REACTIONS (2)
  - ABSCESS INTESTINAL [None]
  - SMALL INTESTINAL OBSTRUCTION [None]
